FAERS Safety Report 26010510 (Version 1)
Quarter: 2025Q4

REPORT INFORMATION
  Report Type: Other
  Country: GB (occurrence: GB)
  Receive Date: 20251107
  Receipt Date: 20251107
  Transmission Date: 20260118
  Serious: Yes (Other)
  Sender: FDC LIMITED
  Company Number: None

PATIENT
  Sex: Female

DRUGS (4)
  1. DORZOLAMIDE\TIMOLOL [Suspect]
     Active Substance: DORZOLAMIDE\TIMOLOL
     Indication: Product used for unknown indication
  2. CHOLECALCIFEROL [Concomitant]
     Active Substance: CHOLECALCIFEROL
     Dates: start: 2024
  3. LATANOPROST [Concomitant]
     Active Substance: LATANOPROST
     Dates: start: 2017
  4. LANSOPRAZOLE [Concomitant]
     Active Substance: LANSOPRAZOLE
     Dates: start: 2021

REACTIONS (1)
  - Nephrolithiasis [Recovered/Resolved]
